FAERS Safety Report 5904238-3 (Version None)
Quarter: 2008Q3

REPORT INFORMATION
  Report Type: 
  Country: None (occurrence: None)
  Receive Date: 20080909
  Receipt Date: 20071130
  Transmission Date: 20090109
  Serious: Yes (Death)
  Sender: FDA-Public Use
  Company Number: 163-20785-07111398

PATIENT
  Age: 76 Year
  Sex: Female

DRUGS (2)
  1. THALOMID [Suspect]
     Indication: MYELOFIBROSIS
     Dosage: 200 MG, DAILY, ORAL
     Route: 048
     Dates: start: 20070809, end: 20071004
  2. THALOMID [Suspect]

REACTIONS (1)
  - DEATH [None]
